FAERS Safety Report 18847266 (Version 1)
Quarter: 2021Q1

REPORT INFORMATION
  Report Type: Report from Study
  Country: US (occurrence: US)
  Receive Date: 20210203
  Receipt Date: 20210203
  Transmission Date: 20210419
  Serious: No
  Sender: FDA-Public Use
  Company Number: US-EXELIXIS-CABO-20034655

PATIENT
  Sex: Male

DRUGS (1)
  1. CABOMETYX [Suspect]
     Active Substance: CABOZANTINIB S-MALATE
     Indication: RENAL CELL CARCINOMA
     Dosage: 40 MG, QD

REACTIONS (11)
  - Anxiety [Unknown]
  - Ear pain [Recovered/Resolved]
  - Faeces hard [Not Recovered/Not Resolved]
  - Rhinorrhoea [Unknown]
  - Abdominal discomfort [Unknown]
  - Asthenia [Unknown]
  - Tremor [Not Recovered/Not Resolved]
  - Diarrhoea [Recovered/Resolved]
  - Hypertension [Not Recovered/Not Resolved]
  - Dysphonia [Unknown]
  - Blood potassium increased [Not Recovered/Not Resolved]
